FAERS Safety Report 14507612 (Version 7)
Quarter: 2018Q2

REPORT INFORMATION
  Report Type: Spontaneous
  Country: US (occurrence: US)
  Receive Date: 20180208
  Receipt Date: 20180614
  Transmission Date: 20180711
  Serious: Yes (Hospitalization, Congenital Anomaly, Other)
  Sender: FDA-Public Use
  Company Number: US-ACTELION-A-NJ2018-166983

PATIENT
  Age: 17 Month
  Sex: Female

DRUGS (11)
  1. TRACLEER [Suspect]
     Active Substance: BOSENTAN
     Dosage: 32 MG, UNK
     Route: 048
     Dates: start: 20180312
  2. FUROSEMIDE. [Concomitant]
     Active Substance: FUROSEMIDE
  3. BUDESONIDE. [Concomitant]
     Active Substance: BUDESONIDE
     Dosage: UNK, QD
     Route: 055
  4. TRACLEER [Suspect]
     Active Substance: BOSENTAN
     Indication: PULMONARY ARTERIAL HYPERTENSION
     Dosage: 32 MG, BID
     Route: 048
     Dates: start: 20180213
  5. REMODULIN [Concomitant]
     Active Substance: TREPROSTINIL
  6. TRACLEER [Suspect]
     Active Substance: BOSENTAN
     Dosage: 6.25 MG, BID
     Route: 048
     Dates: start: 201706
  7. OXYGEN. [Concomitant]
     Active Substance: OXYGEN
  8. ALBUTEROL. [Concomitant]
     Active Substance: ALBUTEROL
     Dosage: UNK, Q6HRS
     Route: 055
  9. CHLOROTHIAZIDE. [Concomitant]
     Active Substance: CHLOROTHIAZIDE
     Dosage: 40 MG, BID
  10. SILDENAFIL. [Concomitant]
     Active Substance: SILDENAFIL
     Dosage: 8 MG, TID
  11. SPIRONOLACTONE. [Concomitant]
     Active Substance: SPIRONOLACTONE
     Dosage: 12.5 MG, BID

REACTIONS (11)
  - Alanine aminotransferase increased [Recovered/Resolved]
  - Influenza [Recovering/Resolving]
  - Pulmonary arterial hypertension [Unknown]
  - Blood bilirubin increased [Recovered/Resolved]
  - Cardio-respiratory arrest [Unknown]
  - Body temperature increased [Unknown]
  - Pneumonia [Unknown]
  - Condition aggravated [Unknown]
  - Liver function test increased [Recovered/Resolved]
  - Respiration abnormal [Unknown]
  - Aspartate aminotransferase increased [Recovered/Resolved]

NARRATIVE: CASE EVENT DATE: 20180224
